FAERS Safety Report 13255616 (Version 1)
Quarter: 2017Q1

REPORT INFORMATION
  Report Type: Spontaneous
  Country: IR (occurrence: IR)
  Receive Date: 20170221
  Receipt Date: 20170221
  Transmission Date: 20170428
  Serious: Yes (Other)
  Sender: FDA-Public Use
  Company Number: IR-UNICHEM LABORATORIES LIMITED-UCM201702-000042

PATIENT
  Age: 43 Year
  Sex: Female

DRUGS (1)
  1. METRONIDAZOLE. [Suspect]
     Active Substance: METRONIDAZOLE
     Indication: HELICOBACTER INFECTION

REACTIONS (3)
  - Deafness bilateral [Recovered/Resolved]
  - Nervous system disorder [Unknown]
  - Encephalopathy [Unknown]
